FAERS Safety Report 9271938 (Version 1)
Quarter: 2013Q2

REPORT INFORMATION
  Report Type: Spontaneous
  Country: NL (occurrence: NL)
  Receive Date: 20130506
  Receipt Date: 20130506
  Transmission Date: 20140414
  Serious: Yes (Death, Hospitalization)
  Sender: FDA-Public Use
  Company Number: NL-TEVA-401103ISR

PATIENT
  Age: 75 Year
  Sex: Female
  Weight: 58 kg

DRUGS (4)
  1. TEMOZOLOMIDE CAPSULE 100MG [Suspect]
     Indication: PALLIATIVE CARE
     Dosage: 120 MILLIGRAM DAILY; 120 MG/DAY DURING 3 WEEKS
     Route: 048
     Dates: start: 201302
  2. OMEPRAZOL CAPSULE MGA 20MG [Concomitant]
     Dosage: 20 MILLIGRAM DAILY;
     Route: 048
  3. METOPROLOL TABLET   50MG [Concomitant]
     Dosage: 50 MILLIGRAM DAILY;
     Route: 048
  4. KEPPRA TABLET FILMOMHULD  500MG [Concomitant]
     Dosage: 1000 MILLIGRAM DAILY;
     Route: 048

REACTIONS (3)
  - Febrile neutropenia [Unknown]
  - Pancytopenia [Unknown]
  - Respiratory failure [Fatal]
